FAERS Safety Report 10672288 (Version 1)
Quarter: 2014Q4

REPORT INFORMATION
  Report Type: Spontaneous
  Country: None (occurrence: None)
  Receive Date: 20141222
  Receipt Date: 20141222
  Transmission Date: 20150529
  Serious: Yes (Disabling)
  Sender: FDA-Public Use
  Company Number: None

PATIENT
  Age: 17 Year
  Sex: Male
  Weight: 70.31 kg

DRUGS (1)
  1. VALTREX [Suspect]
     Active Substance: VALACYCLOVIR HYDROCHLORIDE
     Dosage: TAKEN BY MOUTH

REACTIONS (4)
  - Depression [None]
  - Anxiety [None]
  - Panic attack [None]
  - Disturbance in attention [None]

NARRATIVE: CASE EVENT DATE: 20140912
